FAERS Safety Report 10921433 (Version 1)
Quarter: 2015Q1

REPORT INFORMATION
  Report Type: Spontaneous
  Country: GB (occurrence: GB)
  Receive Date: 20150317
  Receipt Date: 20150317
  Transmission Date: 20150721
  Serious: Yes (Other)
  Sender: FDA-Public Use
  Company Number: GB-CIPLA LTD.-2015GB01938

PATIENT

DRUGS (4)
  1. ESTRIOL/OESTRIOL [Concomitant]
     Dosage: APPLY AT NIGHT
     Dates: start: 20130903
  2. AMLODIPINE [Suspect]
     Active Substance: AMLODIPINE BESYLATE
     Dosage: UNK
     Route: 048
     Dates: start: 20141030
  3. SODIUM ALGINATE/POTASSIUM BICARBONATE [Concomitant]
     Dosage: 5ML-10ML 4 TIMES A DAY, PEPPERMINT
     Dates: start: 20141030
  4. BENDROFLUMETHIAZIDE [Concomitant]
     Active Substance: BENDROFLUMETHIAZIDE
     Dosage: TAKE ONE EACH MORNING
     Dates: start: 20150126, end: 20150223

REACTIONS (2)
  - Urticaria [Recovered/Resolved]
  - Gastrooesophageal reflux disease [Unknown]

NARRATIVE: CASE EVENT DATE: 20150126
